FAERS Safety Report 5410572-6 (Version None)
Quarter: 2007Q3

REPORT INFORMATION
  Report Type: 
  Country: None (occurrence: None)
  Receive Date: 20070810
  Receipt Date: 20070321
  Transmission Date: 20080115
  Serious: No
  Sender: FDA-Public Use
  Company Number: A0644120A

PATIENT
  Sex: Female

DRUGS (2)
  1. PAXIL [Suspect]
     Indication: ANXIETY
     Dosage: 20MG PER DAY
     Route: 048
  2. NO CONCURRENT MEDICATION [Concomitant]

REACTIONS (3)
  - ANXIETY [None]
  - DRUG WITHDRAWAL SYNDROME [None]
  - FEELING JITTERY [None]
